FAERS Safety Report 25627883 (Version 1)
Quarter: 2025Q3

REPORT INFORMATION
  Report Type: Spontaneous
  Country: US (occurrence: None)
  Receive Date: 20250731
  Receipt Date: 20250731
  Transmission Date: 20251021
  Serious: Yes (Disabling)
  Sender: FDA-CTU
  Company Number: None

PATIENT
  Age: 45 Year
  Sex: Female
  Weight: 50.4 kg

DRUGS (11)
  1. QULIPTA [Suspect]
     Active Substance: ATOGEPANT
     Indication: Migraine prophylaxis
     Route: 048
     Dates: start: 20250311
  2. QULIPTA [Concomitant]
     Active Substance: ATOGEPANT
  3. ARMOUR THYROID [Concomitant]
     Active Substance: THYROID, PORCINE
  4. BOTOX [Concomitant]
     Active Substance: ONABOTULINUMTOXINA
  5. nerve blocks [Concomitant]
  6. ZOFRAN [Concomitant]
     Active Substance: ONDANSETRON HYDROCHLORIDE
  7. ONZETRA [Concomitant]
     Active Substance: SUMATRIPTAN SUCCINATE
  8. TESTOSTERONE [Concomitant]
     Active Substance: TESTOSTERONE
  9. MAGNESIUM [Concomitant]
     Active Substance: MAGNESIUM
  10. MIRALAX [Concomitant]
     Active Substance: POLYETHYLENE GLYCOL 3350
  11. ADVIL [Concomitant]
     Active Substance: IBUPROFEN

REACTIONS (1)
  - Anxiety [None]

NARRATIVE: CASE EVENT DATE: 20250311
